FAERS Safety Report 4965136-5 (Version None)
Quarter: 2006Q1

REPORT INFORMATION
  Report Type: 
  Country: None (occurrence: None)
  Receive Date: 20060207
  Receipt Date: 20051003
  Transmission Date: 20060701
  Serious: Yes (Other)
  Sender: FDA-Public Use
  Company Number: HQWYE819804OCT05

PATIENT
  Sex: Female

DRUGS (1)
  1. NORPLANT SYSTEM [Suspect]
     Indication: CONTRACEPTION
     Dosage: 6 CAPSULES, SUBCUTANEOUS
     Route: 058

REACTIONS (2)
  - COMPLICATION OF DEVICE REMOVAL [None]
  - MEDICAL DEVICE COMPLICATION [None]
